FAERS Safety Report 25530844 (Version 1)
Quarter: 2025Q3

REPORT INFORMATION
  Report Type: Report from Study
  Country: EU (occurrence: EU)
  Receive Date: 20250708
  Receipt Date: 20250708
  Transmission Date: 20251021
  Serious: Yes (Other)
  Sender: MYLAN
  Company Number: EU-MYLANLABS-2023M1105679

PATIENT
  Sex: Female

DRUGS (4)
  1. GLATIRAMER ACETATE [Suspect]
     Active Substance: GLATIRAMER ACETATE
     Indication: Multiple sclerosis
     Dosage: UNK UNK, 3XW, (40 MILLIGRAM PER MILLILITRE)
     Dates: start: 20211001, end: 20240331
  2. GLATIRAMER ACETATE [Suspect]
     Active Substance: GLATIRAMER ACETATE
     Dosage: UNK UNK, 3XW, (40 MILLIGRAM PER MILLILITRE)
     Route: 058
     Dates: start: 20211001, end: 20240331
  3. GLATIRAMER ACETATE [Suspect]
     Active Substance: GLATIRAMER ACETATE
     Dosage: UNK UNK, 3XW, (40 MILLIGRAM PER MILLILITRE)
     Route: 058
     Dates: start: 20211001, end: 20240331
  4. GLATIRAMER ACETATE [Suspect]
     Active Substance: GLATIRAMER ACETATE
     Dosage: UNK UNK, 3XW, (40 MILLIGRAM PER MILLILITRE)
     Dates: start: 20211001, end: 20240331

REACTIONS (14)
  - Injection site indentation [Unknown]
  - Injection site reaction [Unknown]
  - Spinal pain [Unknown]
  - Chills [Unknown]
  - Malaise [Unknown]
  - Discomfort [Unknown]
  - Injection site mass [Unknown]
  - Injection site erythema [Recovered/Resolved]
  - Injection site atrophy [Unknown]
  - Flushing [Recovered/Resolved]
  - Piloerection [Recovered/Resolved]
  - Erythema [Recovered/Resolved]
  - Palpitations [Recovered/Resolved]
  - Dyspnoea [Recovered/Resolved]

NARRATIVE: CASE EVENT DATE: 20211001
